FAERS Safety Report 7132615-4 (Version None)
Quarter: 2010Q4

REPORT INFORMATION
  Report Type: 
  Country: None (occurrence: None)
  Receive Date: 20101130
  Receipt Date: 20101130
  Transmission Date: 20110411
  Serious: Yes (Other)
  Sender: FDA-Public Use
  Company Number: None

PATIENT
  Age: 36 Year
  Sex: Female
  Weight: 90.7194 kg

DRUGS (2)
  1. AMOXIL [Suspect]
     Indication: BRONCHITIS
     Dosage: ONE 8 HOURS PO
     Route: 048
     Dates: start: 20101113, end: 20101118
  2. ZITHROMAX [Concomitant]

REACTIONS (3)
  - PRURITUS GENERALISED [None]
  - URTICARIA [None]
  - VAGINAL INFECTION [None]
